FAERS Safety Report 18161294 (Version 3)
Quarter: 2022Q2

REPORT INFORMATION
  Report Type: Report from Study
  Country: CN (occurrence: None)
  Receive Date: 20200818
  Receipt Date: 20220407
  Transmission Date: 20220721
  Serious: Yes (Death)
  Sender: FDA-Public Use
  Company Number: CN-ROCHE-1989738

PATIENT
  Age: 60 Year
  Sex: Male
  Weight: 64 kg

DRUGS (5)
  1. ATEZOLIZUMAB [Suspect]
     Active Substance: ATEZOLIZUMAB
     Indication: Neoplasm
     Dosage: MOST RECENT DOSE (1200 MG ONCE PER 3 WEEKS): 01/AUG/2017
     Route: 041
     Dates: start: 20170711
  2. RABEPRAZOLE [Concomitant]
     Active Substance: RABEPRAZOLE
     Dates: start: 20170706, end: 20170902
  3. LANSOPRAZOLE [Concomitant]
     Active Substance: LANSOPRAZOLE
     Indication: Anaemia
     Dates: start: 20170710
  4. HYDROTALCITE [Concomitant]
     Active Substance: HYDROTALCITE
     Indication: Anaemia
     Dates: start: 20170710
  5. BISMUTH SUBCITRATE [Concomitant]
     Active Substance: BISMUTH SUBCITRATE
     Indication: Anaemia
     Dates: start: 20170710

REACTIONS (1)
  - Death [Fatal]

NARRATIVE: CASE EVENT DATE: 20170902
